FAERS Safety Report 16065095 (Version 2)
Quarter: 2019Q2

REPORT INFORMATION
  Report Type: Spontaneous
  Country: US (occurrence: US)
  Receive Date: 20190313
  Receipt Date: 20190606
  Transmission Date: 20190711
  Serious: No
  Sender: FDA-Public Use
  Company Number: US-CELGENEUS-USA-20190301269

PATIENT
  Age: 71 Year
  Sex: Female

DRUGS (1)
  1. OTEZLA [Suspect]
     Active Substance: APREMILAST
     Indication: PSORIASIS
     Dosage: 60 MILLIGRAM
     Route: 048
     Dates: start: 20190121, end: 20190416

REACTIONS (15)
  - Palpitations [Not Recovered/Not Resolved]
  - Productive cough [Recovering/Resolving]
  - Asthenia [Not Recovered/Not Resolved]
  - Vomiting [Recovering/Resolving]
  - Weight decreased [Not Recovered/Not Resolved]
  - Nausea [Not Recovered/Not Resolved]
  - Diarrhoea [Not Recovered/Not Resolved]
  - Headache [Not Recovered/Not Resolved]
  - Decreased appetite [Not Recovered/Not Resolved]
  - Therapy non-responder [Unknown]
  - Chills [Not Recovered/Not Resolved]
  - Abdominal discomfort [Recovering/Resolving]
  - Retching [Recovering/Resolving]
  - Hyperhidrosis [Not Recovered/Not Resolved]
  - Paranasal sinus hypersecretion [Recovering/Resolving]

NARRATIVE: CASE EVENT DATE: 2019
